FAERS Safety Report 6662190-X (Version None)
Quarter: 2010Q1

REPORT INFORMATION
  Report Type: 
  Country: None (occurrence: None)
  Receive Date: 20100331
  Receipt Date: 20100317
  Transmission Date: 20100710
  Serious: Yes (Other)
  Sender: FDA-Public Use
  Company Number: GB-MYLANLABS-2010S1004582

PATIENT
  Age: 58 Year

DRUGS (4)
  1. AZATHIOPRINE [Suspect]
     Indication: RHEUMATOID ARTHRITIS
     Route: 048
     Dates: start: 20091019, end: 20100210
  2. ACETAMINOPHEN AND CODEINE PHOSPHATE [Concomitant]
     Indication: DRUG USE FOR UNKNOWN INDICATION
     Route: 048
  3. IBUPROFEN [Concomitant]
     Indication: PAIN
     Route: 048
  4. KENALOG [Concomitant]
     Indication: RHEUMATOID ARTHRITIS
     Route: 030

REACTIONS (3)
  - MIGRAINE [None]
  - PHOTOPSIA [None]
  - VISUAL IMPAIRMENT [None]
